FAERS Safety Report 8420192-7 (Version None)
Quarter: 2012Q2

REPORT INFORMATION
  Report Type: 
  Country: None (occurrence: None)
  Receive Date: 20120607
  Receipt Date: 20120528
  Transmission Date: 20120825
  Serious: Yes (Hospitalization)
  Sender: FDA-Public Use
  Company Number: JP-INCYTE CORPORATION-2012IN000134

PATIENT

DRUGS (11)
  1. ATELEC [Concomitant]
     Dosage: UNK
     Dates: start: 20080909
  2. VITAMIN B12 [Concomitant]
     Dosage: UNK
     Dates: start: 20120126, end: 20120210
  3. CELECOXIB [Concomitant]
     Dosage: UNK
     Dates: start: 20120110
  4. VOLTAREN [Concomitant]
     Dosage: UNK
     Dates: start: 20120120, end: 20120126
  5. GENTAMICIN SULFATE [Concomitant]
     Dosage: UNK
     Dates: start: 20120119, end: 20120126
  6. INC424 [Suspect]
     Indication: MYELOFIBROSIS
     Dosage: 40 MG, UNK
     Route: 048
     Dates: start: 20111208, end: 20120127
  7. FAMVIR [Concomitant]
     Dosage: UNK
     Dates: start: 20120119, end: 20120126
  8. GASMOTIN [Concomitant]
     Dosage: UNK
     Dates: start: 20111111
  9. KETOPROFEN [Concomitant]
     Dosage: UNK
     Dates: start: 20120110
  10. INC424 [Suspect]
     Dosage: 20 MG, BID
     Route: 048
     Dates: start: 20120224
  11. RABEPRAZOLE SODIUM [Concomitant]
     Dosage: UNK
     Dates: start: 20101028

REACTIONS (1)
  - POST HERPETIC NEURALGIA [None]
